FAERS Safety Report 9471001 (Version 1)
Quarter: 2013Q3

REPORT INFORMATION
  Report Type: Spontaneous
  Country: GB (occurrence: None)
  Receive Date: 20130816
  Receipt Date: 20130816
  Transmission Date: 20140515
  Serious: Yes (Other)
  Sender: FDA-Public Use
  Company Number: 2013-358

PATIENT
  Age: 30 Year
  Sex: Male

DRUGS (1)
  1. CLOZAPINE [Suspect]
     Indication: SCHIZOPHRENIA
     Dosage: 45-600 MG, QD

REACTIONS (7)
  - Vitello-intestinal duct remnant [None]
  - Small intestinal resection [None]
  - Intestinal obstruction [None]
  - Ileus paralytic [None]
  - Schizophrenia [None]
  - Eructation [None]
  - Flatulence [None]
